FAERS Safety Report 6944616-7 (Version None)
Quarter: 2010Q3

REPORT INFORMATION
  Report Type: 
  Country: None (occurrence: None)
  Receive Date: 20100827
  Receipt Date: 20100818
  Transmission Date: 20110219
  Serious: Yes (Hospitalization)
  Sender: FDA-Public Use
  Company Number: CA-JNJFOC-20100806748

PATIENT
  Sex: Female
  Weight: 127 kg

DRUGS (16)
  1. REMICADE [Suspect]
     Indication: PSORIASIS
     Route: 042
  2. REMICADE [Suspect]
     Route: 042
  3. METHADONE [Concomitant]
  4. TRAZODONE HCL [Concomitant]
  5. SEROQUEL [Concomitant]
  6. INSULIN [Concomitant]
  7. PREVACID [Concomitant]
  8. AMITRIPTYLINE HCL [Concomitant]
  9. SYNTHROID [Concomitant]
  10. NOVOSPIROTON [Concomitant]
  11. RAMIPRIL [Concomitant]
  12. PREDNISONE [Concomitant]
  13. FUROSEMIDE [Concomitant]
  14. OXYBUTYNIN [Concomitant]
  15. CARVEDILOL [Concomitant]
  16. PROZAC [Concomitant]

REACTIONS (7)
  - BACK PAIN [None]
  - COORDINATION ABNORMAL [None]
  - GAIT DISTURBANCE [None]
  - HEARING IMPAIRED [None]
  - INADEQUATE DIET [None]
  - NAUSEA [None]
  - VOMITING [None]
